FAERS Safety Report 5952205-6 (Version None)
Quarter: 2008Q4

REPORT INFORMATION
  Report Type: 
  Country: None (occurrence: None)
  Receive Date: 20081113
  Receipt Date: 20081104
  Transmission Date: 20090506
  Serious: Yes (Other)
  Sender: FDA-Public Use
  Company Number: FR-JNJFOC-20081100961

PATIENT
  Age: 83 Year
  Sex: Male

DRUGS (5)
  1. REMINYL LP [Suspect]
     Indication: DEMENTIA ALZHEIMER'S TYPE
     Route: 048
  2. ATENOLOL [Concomitant]
  3. PREVISCAN [Concomitant]
  4. TARDIFERON [Concomitant]
  5. PAROXETINE HCL [Concomitant]

REACTIONS (3)
  - DIARRHOEA [None]
  - DRUG DISPENSING ERROR [None]
  - NO ADVERSE EVENT [None]
